FAERS Safety Report 16000786 (Version 2)
Quarter: 2019Q1

REPORT INFORMATION
  Report Type: Spontaneous
  Country: ES (occurrence: ES)
  Receive Date: 20190225
  Receipt Date: 20190312
  Transmission Date: 20190418
  Serious: Yes (Hospitalization)
  Sender: FDA-Public Use
  Company Number: ES-CELGENEUS-ESP-20190205126

PATIENT
  Age: 77 Year
  Sex: Female
  Weight: 51.4 kg

DRUGS (20)
  1. AZACITIDINE. [Suspect]
     Active Substance: AZACITIDINE
     Indication: ACUTE MYELOID LEUKAEMIA
     Route: 058
     Dates: start: 20181217, end: 20181227
  2. FLUCONAZOLE. [Concomitant]
     Active Substance: FLUCONAZOLE
     Indication: PROPHYLAXIS
     Dosage: 200 MILLIGRAM
     Route: 041
     Dates: start: 20190110
  3. ENANTYUM [Concomitant]
     Active Substance: DEXKETOPROFEN TROMETAMOL
     Indication: BACK PAIN
     Route: 065
     Dates: start: 20181212
  4. ACICLOVIR [Concomitant]
     Active Substance: ACYCLOVIR
     Indication: MOUTH ULCERATION
     Dosage: 500 MILLIGRAM
     Route: 065
     Dates: start: 20190111
  5. TEICOPLANINE [Concomitant]
     Active Substance: TEICOPLANIN
     Indication: FEBRILE NEUTROPENIA
     Dosage: 800 MILLIGRAM
     Route: 065
     Dates: start: 20190113, end: 20190116
  6. AMIKACIN. [Concomitant]
     Active Substance: AMIKACIN
     Indication: FEBRILE NEUTROPENIA
     Dosage: 500 MILLIGRAM
     Route: 065
     Dates: start: 20190110
  7. MOVICOL [Concomitant]
     Active Substance: POLYETHYLENE GLYCOL 3350\POTASSIUM CHLORIDE\SODIUM BICARBONATE\SODIUM CHLORIDE
     Indication: CONSTIPATION PROPHYLAXIS
     Route: 048
     Dates: start: 20181217
  8. PUNTUALEX [Concomitant]
     Indication: CONSTIPATION
     Dosage: 150/5 MG/ML
     Route: 065
     Dates: start: 20181231
  9. TAZOBACTAM SODIUM AND PIPERACILLIN SODIUM [Concomitant]
     Active Substance: PIPERACILLIN SODIUM\TAZOBACTAM SODIUM
     Indication: FEBRILE NEUTROPENIA
     Dosage: 12 GRAM
     Route: 065
     Dates: start: 20190108
  10. ORAMORPH [Concomitant]
     Active Substance: MORPHINE SULFATE
     Indication: ANALGESIC THERAPY
     Route: 048
  11. PARACETAMOL [Concomitant]
     Active Substance: ACETAMINOPHEN
     Indication: ANALGESIC THERAPY
     Route: 048
  12. MORPHINE CHLORIDE [Concomitant]
     Active Substance: MORPHINE HYDROCHLORIDE
     Indication: PAIN PROPHYLAXIS
     Dosage: 30 MILLIGRAM
     Route: 041
  13. RANITIDINE. [Concomitant]
     Active Substance: RANITIDINE
     Indication: GASTRITIS PROPHYLAXIS
     Dosage: 300 MILLIGRAM
     Route: 048
  14. DEXKETOPROFEN [Concomitant]
     Active Substance: DEXKETOPROFEN
     Indication: PAIN PROPHYLAXIS
     Route: 048
  15. LORAZEPAM. [Concomitant]
     Active Substance: LORAZEPAM
     Indication: PROPHYLAXIS
     Route: 048
  16. PRACINOSTAT [Concomitant]
     Active Substance: PRACINOSTAT
     Indication: ACUTE MYELOID LEUKAEMIA
     Dosage: 25.7143 MILLIGRAM
     Route: 048
     Dates: start: 20181217, end: 20190104
  17. PRIMPERAN [Concomitant]
     Active Substance: METOCLOPRAMIDE HYDROCHLORIDE
     Indication: ANTIEMETIC SUPPORTIVE CARE
     Route: 048
     Dates: start: 20181217
  18. ALLOPURINOL. [Concomitant]
     Active Substance: ALLOPURINOL
     Indication: TUMOUR LYSIS SYNDROME
     Dosage: 300 MILLIGRAM
     Route: 048
     Dates: start: 20181217
  19. OMEPRAZOLE. [Concomitant]
     Active Substance: OMEPRAZOLE
     Indication: GASTRITIS PROPHYLAXIS
     Route: 048
     Dates: start: 2018
  20. EMULQUINE LAXATIVE [Concomitant]
     Indication: CONSTIPATION
     Dosage: 4.5 MILLIGRAM
     Route: 065
     Dates: start: 20181231

REACTIONS (2)
  - Febrile neutropenia [Recovered/Resolved]
  - Cervix neoplasm [Recovered/Resolved]

NARRATIVE: CASE EVENT DATE: 20190129
